FAERS Safety Report 9432860 (Version 1)
Quarter: 2013Q3

REPORT INFORMATION
  Report Type: Spontaneous
  Country: BY (occurrence: None)
  Receive Date: 20130729
  Receipt Date: 20130729
  Transmission Date: 20140515
  Serious: Yes (Other)
  Sender: FDA-Public Use
  Company Number: SYM-2013-06853

PATIENT
  Sex: 0

DRUGS (3)
  1. FLUOROURACIL (FLUOROURACIL) (FLUOROURACIL) [Suspect]
     Indication: BREAST CANCER
     Dosage: 600 MG/M2, DAILY
  2. CYCLOPHOSPHAMIDE [Suspect]
     Indication: BREAST CANCER
     Dosage: 500 MG/M2, EVERY THREE WEEKS
  3. VINORELBINE [Suspect]
     Indication: BREAST CANCER
     Dosage: 30 MG/M2

REACTIONS (3)
  - Stomatitis [None]
  - Leukopenia [None]
  - Pneumonia [None]
